FAERS Safety Report 8216483-5 (Version None)
Quarter: 2012Q1

REPORT INFORMATION
  Report Type: 
  Country: None (occurrence: None)
  Receive Date: 20120313
  Receipt Date: 20120228
  Transmission Date: 20120608
  Serious: Yes (Life-Threatening)
  Sender: FDA-Public Use
  Company Number: TCI2012A00226

PATIENT
  Age: 50 Year
  Sex: Male

DRUGS (11)
  1. ATELEC (CILNIDIPINE) [Concomitant]
  2. EQUA (VILDAGLIPTIN) [Concomitant]
  3. MIGLITOL [Concomitant]
  4. ZETIA [Concomitant]
  5. URINORM (BENZBROMARONE) [Concomitant]
  6. ACTOS [Suspect]
     Indication: DIABETES MELLITUS
     Dosage: 15 MG (15 MG, 1 IN 1 D), PER ORAL
     Route: 048
     Dates: start: 20080801, end: 20111116
  7. AVAPRO [Concomitant]
  8. GLUCOBAY [Concomitant]
  9. LIVALO [Concomitant]
  10. GLUCORAN (METFORMIN HYDROCHLORIDE) [Concomitant]
  11. AMARYL [Concomitant]

REACTIONS (1)
  - BLADDER SQUAMOUS CELL CARCINOMA STAGE UNSPECIFIED [None]
